FAERS Safety Report 25288790 (Version 2)
Quarter: 2025Q2

REPORT INFORMATION
  Report Type: Spontaneous
  Country: PR (occurrence: PR)
  Receive Date: 20250509
  Receipt Date: 20250516
  Transmission Date: 20250716
  Serious: No
  Sender: ABBVIE
  Company Number: PR-ABBVIE-6268946

PATIENT
  Sex: Female

DRUGS (1)
  1. VYALEV [Suspect]
     Active Substance: FOSCARBIDOPA\FOSLEVODOPA
     Indication: Parkinson^s disease
     Route: 058

REACTIONS (6)
  - Muscle rigidity [Recovering/Resolving]
  - Infusion site inflammation [Recovering/Resolving]
  - Infusion site reaction [Recovering/Resolving]
  - Infusion site erythema [Recovering/Resolving]
  - On and off phenomenon [Recovering/Resolving]
  - Dyskinesia [Recovering/Resolving]
